FAERS Safety Report 7411698-8 (Version None)
Quarter: 2011Q2

REPORT INFORMATION
  Report Type: 
  Country: None (occurrence: None)
  Receive Date: 20110413
  Receipt Date: 20101111
  Transmission Date: 20111010
  Serious: No
  Sender: FDA-Public Use
  Company Number: US-BRISTOL-MYERS SQUIBB COMPANY-15382492

PATIENT

DRUGS (1)
  1. ERBITUX [Suspect]

REACTIONS (4)
  - SKIN FISSURES [None]
  - ONYCHOLYSIS [None]
  - NAIL DISORDER [None]
  - DRY SKIN [None]
